FAERS Safety Report 18326822 (Version 2)
Quarter: 2020Q4

REPORT INFORMATION
  Report Type: Report from Study
  Country: US (occurrence: US)
  Receive Date: 20200929
  Receipt Date: 20201006
  Transmission Date: 20210113
  Serious: Yes (Hospitalization, Other)
  Sender: FDA-Public Use
  Company Number: US-GILEAD-2020-0496336

PATIENT
  Age: 78 Year
  Sex: Female

DRUGS (3)
  1. ELIQUIS [Concomitant]
     Active Substance: APIXABAN
  2. AMBRISENTAN [Suspect]
     Active Substance: AMBRISENTAN
     Indication: PULMONARY HYPERTENSION
     Dosage: 5 MG, QD
     Route: 065
     Dates: start: 20161121
  3. FELODIPINE. [Concomitant]
     Active Substance: FELODIPINE

REACTIONS (4)
  - Swelling [Unknown]
  - Anaemia [Unknown]
  - Transient ischaemic attack [Unknown]
  - Scleroderma [Not Recovered/Not Resolved]
